FAERS Safety Report 10721444 (Version 6)
Quarter: 2016Q1

REPORT INFORMATION
  Report Type: Report from Study
  Country: US (occurrence: US)
  Receive Date: 20150119
  Receipt Date: 20160112
  Transmission Date: 20160525
  Serious: Yes (Hospitalization, Other)
  Sender: FDA-Public Use
  Company Number: US-SA-2014SA140548

PATIENT
  Age: 74 Year
  Sex: Male
  Weight: 81.6 kg

DRUGS (15)
  1. AUBAGIO [Suspect]
     Active Substance: TERIFLUNOMIDE
     Indication: PROGRESSIVE MULTIPLE SCLEROSIS
     Route: 048
     Dates: start: 20140923, end: 201502
  2. AUBAGIO [Suspect]
     Active Substance: TERIFLUNOMIDE
     Indication: PROGRESSIVE MULTIPLE SCLEROSIS
     Route: 048
     Dates: start: 20131009, end: 20140922
  3. DEPAKOTE [Concomitant]
     Active Substance: DIVALPROEX SODIUM
     Indication: CONVULSION PROPHYLAXIS
     Dosage: 500 MG
     Dates: start: 2005
  4. CALCIUM [Concomitant]
     Active Substance: CALCIUM
     Indication: OSTEOPOROSIS
     Dosage: 600 MG, 2009 OR 2010
  5. VITAMIN D [Concomitant]
     Active Substance: CHOLECALCIFEROL
     Dosage: 2000 IU, LOW COUNT PER TEST
  6. CITALOPRAM [Concomitant]
     Active Substance: CITALOPRAM HYDROBROMIDE
     Indication: DISTURBANCE IN ATTENTION
     Dosage: 10 MG, MENTAL FOCUS
     Dates: start: 2006
  7. LEVOTHYROXINE. [Concomitant]
     Active Substance: LEVOTHYROXINE
     Indication: THYROID DISORDER
     Dosage: 88 MCG
  8. SIMVASTATIN. [Concomitant]
     Active Substance: SIMVASTATIN
     Indication: BLOOD CHOLESTEROL INCREASED
     Dosage: 20 MG
  9. FLAXSEED [Concomitant]
     Active Substance: FLAX SEED
     Dosage: DR RECOMMENDATION
     Dates: start: 2003
  10. AUBAGIO [Suspect]
     Active Substance: TERIFLUNOMIDE
     Indication: PROGRESSIVE MULTIPLE SCLEROSIS
     Route: 048
     Dates: start: 2015, end: 201510
  11. AGGRENOX [Concomitant]
     Active Substance: ASPIRIN\DIPYRIDAMOLE
     Indication: PROPHYLAXIS
     Dosage: 25/200 MG
     Dates: start: 2004
  12. OXYBUTYNIN [Concomitant]
     Active Substance: OXYBUTYNIN
     Indication: BLADDER DISORDER
     Dosage: 5 MG
     Dates: start: 20150112
  13. MODAFINIL. [Concomitant]
     Active Substance: MODAFINIL
     Indication: FATIGUE
     Dosage: 200MG
     Dates: start: 200302
  14. VALSARTAN. [Concomitant]
     Active Substance: VALSARTAN
     Indication: BLOOD PRESSURE MEASUREMENT
     Dosage: 80 MG
  15. FOSAMAX [Concomitant]
     Active Substance: ALENDRONATE SODIUM
     Indication: OSTEOPOROSIS
     Dosage: 2009 OR 2010, 70 MG STRENGTH

REACTIONS (20)
  - Diarrhoea [Unknown]
  - Contusion [Recovering/Resolving]
  - Walking aid user [Unknown]
  - Multiple sclerosis relapse [Unknown]
  - Deafness [Unknown]
  - Disorientation [Recovering/Resolving]
  - Anal incontinence [Not Recovered/Not Resolved]
  - Influenza [Recovered/Resolved]
  - Memory impairment [Unknown]
  - Fatigue [Unknown]
  - Oedema peripheral [Unknown]
  - Pyrexia [Recovered/Resolved]
  - Mobility decreased [Unknown]
  - Fall [Unknown]
  - Confusional state [Unknown]
  - Oxygen saturation decreased [Unknown]
  - Chills [Unknown]
  - Pneumonia [Recovered/Resolved]
  - Multiple sclerosis relapse [Recovering/Resolving]
  - Defaecation urgency [Not Recovered/Not Resolved]

NARRATIVE: CASE EVENT DATE: 201310
